FAERS Safety Report 7750165-9 (Version None)
Quarter: 2011Q3

REPORT INFORMATION
  Report Type: 
  Country: None (occurrence: None)
  Receive Date: 20110914
  Receipt Date: 20110914
  Transmission Date: 20111222
  Serious: Yes (Other)
  Sender: FDA-Public Use
  Company Number: None

PATIENT
  Age: 50 Year
  Sex: Male
  Weight: 120.2 kg

DRUGS (1)
  1. ESTRING [Suspect]
     Indication: MENOPAUSE
     Dates: start: 20040101, end: 20100101

REACTIONS (3)
  - MICTURITION DISORDER [None]
  - GENITAL DISORDER MALE [None]
  - MALE SEXUAL DYSFUNCTION [None]
